FAERS Safety Report 12205203 (Version 2)
Quarter: 2017Q2

REPORT INFORMATION
  Report Type: Spontaneous
  Country: US (occurrence: US)
  Receive Date: 20160323
  Receipt Date: 20170504
  Transmission Date: 20170830
  Serious: Yes (Hospitalization)
  Sender: FDA-Public Use
  Company Number: US-ASTRAZENECA-2016SE29251

PATIENT
  Sex: Male
  Weight: 10.9 kg

DRUGS (5)
  1. FLUORITAB [Concomitant]
     Route: 050
  2. OMEPRAZOLE. [Suspect]
     Active Substance: OMEPRAZOLE
     Route: 050
  3. SYNAGIS [Suspect]
     Active Substance: PALIVIZUMAB
     Indication: RESPIRATORY SYNCYTIAL VIRUS INFECTION
     Dosage: VIAL OF100MG AND VIAL OF 50MG PRESENTATION, 15 MG/KG, MONTHLY
     Route: 030
  4. MIRALAX [Concomitant]
     Active Substance: POLYETHYLENE GLYCOL 3350
     Route: 050
  5. SYNAGIS [Suspect]
     Active Substance: PALIVIZUMAB
     Indication: RESPIRATORY SYNCYTIAL VIRUS INFECTION
     Dosage: VIAL OF100MG AND VIAL OF 50MG PRESENTATION, 15 MG/KG, MONTHLY
     Route: 030

REACTIONS (1)
  - Respiratory syncytial virus infection [Unknown]
